FAERS Safety Report 11717902 (Version 1)
Quarter: 2015Q4

REPORT INFORMATION
  Report Type: Spontaneous
  Country: US (occurrence: US)
  Receive Date: 20151110
  Receipt Date: 20151110
  Transmission Date: 20160304
  Serious: Yes (Death, Hospitalization, Other)
  Sender: FDA-Public Use
  Company Number: US-ASTRAZENECA-2015SE78174

PATIENT
  Sex: Male

DRUGS (3)
  1. ASPIRIN. [Concomitant]
     Active Substance: ASPIRIN
  2. BRILINTA [Suspect]
     Active Substance: TICAGRELOR
     Indication: ACUTE CORONARY SYNDROME
     Route: 048
     Dates: start: 201507, end: 2015
  3. CLOPIDOGREL [Concomitant]
     Active Substance: CLOPIDOGREL BISULFATE

REACTIONS (12)
  - Pruritus [Unknown]
  - Renal disorder [Unknown]
  - Contusion [Unknown]
  - Anaemia [Unknown]
  - Ischaemic cardiomyopathy [Fatal]
  - Bronchitis [Unknown]
  - Haemorrhoids [Unknown]
  - Scab [Unknown]
  - Dyspnoea [Unknown]
  - Haemorrhage [Unknown]
  - Asthma [Unknown]
  - Diabetes mellitus [Unknown]
